FAERS Safety Report 16083310 (Version 1)
Quarter: 2019Q1

REPORT INFORMATION
  Report Type: Spontaneous
  Country: US (occurrence: US)
  Receive Date: 20190318
  Receipt Date: 20190318
  Transmission Date: 20190418
  Serious: No
  Sender: FDA-Public Use
  Company Number: US-GLAXOSMITHKLINE-US2019GSK046268

PATIENT
  Age: 55 Year
  Sex: Female

DRUGS (2)
  1. NUCALA [Suspect]
     Active Substance: MEPOLIZUMAB
     Indication: ASTHMA
     Dosage: 100 MG, CYC
     Route: 042
     Dates: start: 201709, end: 201710
  2. NUCALA [Suspect]
     Active Substance: MEPOLIZUMAB
     Dosage: 100 MG, CYC
     Route: 042
     Dates: start: 20180413

REACTIONS (3)
  - Malaise [Unknown]
  - Upper-airway cough syndrome [Unknown]
  - Multiple allergies [Unknown]

NARRATIVE: CASE EVENT DATE: 20190214
